APPROVED DRUG PRODUCT: FLUCONAZOLE
Active Ingredient: FLUCONAZOLE
Strength: 100MG
Dosage Form/Route: TABLET;ORAL
Application: A077731 | Product #002 | TE Code: AB
Applicant: AUROBINDO PHARMA LTD
Approved: Oct 7, 2008 | RLD: No | RS: No | Type: RX